FAERS Safety Report 9773021 (Version 1)
Quarter: 2013Q4

REPORT INFORMATION
  Report Type: Spontaneous
  Country: FR (occurrence: None)
  Receive Date: 20131217
  Receipt Date: 20131217
  Transmission Date: 20140711
  Serious: Yes (Hospitalization)
  Sender: FDA-Public Use
  Company Number: 7254709

PATIENT
  Age: 81 Year
  Sex: Female

DRUGS (3)
  1. LEVOTHYROX [Suspect]
     Indication: PRODUCT USED FOR UNKNOWN INDICATION
     Dosage: 1 DF (1 DF, 1 IN 1 D)
     Route: 048
     Dates: end: 20020915
  2. METFORMIN [Suspect]
     Route: 048
     Dates: start: 201307, end: 20130909
  3. SINEMET [Suspect]
     Indication: PRODUCT USED FOR UNKNOWN INDICATION
     Dosage: 2 DF (1 DF, 2 IN 1 D), ORAL
     Route: 048
     Dates: end: 20130915

REACTIONS (3)
  - Asthenia [None]
  - Decreased appetite [None]
  - Food aversion [None]
